FAERS Safety Report 17843678 (Version 3)
Quarter: 2020Q2

REPORT INFORMATION
  Report Type: Spontaneous
  Country: DE (occurrence: DE)
  Receive Date: 20200531
  Receipt Date: 20200609
  Transmission Date: 20200714
  Serious: Yes (Death, Hospitalization, Other)
  Sender: FDA-Public Use
  Company Number: DE-AUROBINDO-AUR-APL-2020-026052

PATIENT
  Age: 38 Year
  Sex: Female

DRUGS (12)
  1. NORADRENALINE [Suspect]
     Active Substance: NOREPINEPHRINE
     Indication: PRODUCT USED FOR UNKNOWN INDICATION
     Dosage: 10 MG/50 ML
     Route: 065
  2. FLUMAZENIL. [Suspect]
     Active Substance: FLUMAZENIL
     Indication: PRODUCT USED FOR UNKNOWN INDICATION
     Dosage: UNK
     Route: 065
  3. GLUCAGON. [Suspect]
     Active Substance: GLUCAGON
     Indication: PRODUCT USED FOR UNKNOWN INDICATION
     Dosage: UNK
     Route: 065
  4. LORAZEPAM. [Suspect]
     Active Substance: LORAZEPAM
     Indication: PRODUCT USED FOR UNKNOWN INDICATION
     Dosage: TOTAL CUMULATIVE DOSE OF 10.5 G METOPROLOL SUCCINATE
     Route: 065
  5. FENTANYL TRANSDERMAL SYSTEM [Suspect]
     Active Substance: FENTANYL
     Indication: PRODUCT USED FOR UNKNOWN INDICATION
     Dosage: 23 FENTANYL PATCHES ADHERED TO SKIN, WHICH WERE CORRESPONDED TO A CUMULATIVE DOSE OF 419 MCG/H
     Route: 065
  6. METOPROLOL SUCCINATE. [Suspect]
     Active Substance: METOPROLOL SUCCINATE
     Indication: HYPERTENSION
     Dosage: 7.5 GRAM
     Route: 065
  7. METOPROLOL SUCCINATE. [Suspect]
     Active Substance: METOPROLOL SUCCINATE
     Dosage: 10.5 GRAM
     Route: 065
  8. INSULIN [Suspect]
     Active Substance: INSULIN NOS
     Indication: PRODUCT USED FOR UNKNOWN INDICATION
     Dosage: UNK (HIGH-DOSE)
     Route: 065
  9. ADRENALINE [Suspect]
     Active Substance: EPINEPHRINE
     Indication: PRODUCT USED FOR UNKNOWN INDICATION
     Dosage: UNK
     Route: 040
  10. NALOXONE [Suspect]
     Active Substance: NALOXONE
     Indication: PRODUCT USED FOR UNKNOWN INDICATION
     Dosage: UNK
     Route: 065
  11. LORAZEPAM. [Suspect]
     Active Substance: LORAZEPAM
     Dosage: 50 MILLIGRAM
     Route: 065
  12. CALCIUM GLUCONATE. [Suspect]
     Active Substance: CALCIUM GLUCONATE
     Indication: PRODUCT USED FOR UNKNOWN INDICATION
     Dosage: UNK
     Route: 065

REACTIONS (25)
  - Blood glucose increased [Fatal]
  - Vasoconstriction [Fatal]
  - Intracardiac thrombus [Unknown]
  - Overdose [Unknown]
  - Ventricular tachycardia [Fatal]
  - Coronary artery occlusion [Fatal]
  - Toxicity to various agents [Fatal]
  - Haemodynamic instability [Unknown]
  - Metabolic acidosis [Fatal]
  - Drug ineffective [Fatal]
  - Pulseless electrical activity [Unknown]
  - Coma [Fatal]
  - Embolic cerebral infarction [Fatal]
  - Bradypnoea [Unknown]
  - Circulatory collapse [Fatal]
  - Bundle branch block left [Fatal]
  - Acute myocardial infarction [Fatal]
  - Cerebral ischaemia [Fatal]
  - Cardiac arrest [Fatal]
  - Intentional overdose [Fatal]
  - Angina unstable [Unknown]
  - Suicide attempt [Fatal]
  - Hyperkalaemia [Recovering/Resolving]
  - Embolism [Not Recovered/Not Resolved]
  - Respiratory failure [Fatal]
